FAERS Safety Report 14969538 (Version 1)
Quarter: 2018Q2

REPORT INFORMATION
  Report Type: Spontaneous
  Country: US (occurrence: US)
  Receive Date: 20180512
  Receipt Date: 20180512
  Transmission Date: 20180711
  Serious: Yes (Other)
  Sender: FDA-Public Use
  Company Number: None

PATIENT
  Age: 29 Year
  Sex: Male
  Weight: 153 kg

DRUGS (1)
  1. HYDROCODONE 10MG/ 325MG ACTIMINOPHENE GENERIC FOR NORCO [Suspect]
     Active Substance: ACETAMINOPHEN\HYDROCODONE BITARTRATE
     Indication: PAIN
     Dosage: ?          QUANTITY:1 TABLET(S);?
     Route: 048
     Dates: start: 20180412, end: 20180511

REACTIONS (4)
  - Drug ineffective [None]
  - Product measured potency issue [None]
  - Product solubility abnormal [None]
  - Withdrawal syndrome [None]

NARRATIVE: CASE EVENT DATE: 20180511
